FAERS Safety Report 18086594 (Version 1)
Quarter: 2020Q3

REPORT INFORMATION
  Report Type: Spontaneous
  Country: US (occurrence: US)
  Receive Date: 20200728
  Receipt Date: 20200728
  Transmission Date: 20201103
  Serious: Yes (Other)
  Sender: FDA-Public Use
  Company Number: None

PATIENT
  Age: 35 Year
  Sex: Female
  Weight: 126 kg

DRUGS (2)
  1. CEPHALEXIN. [Suspect]
     Active Substance: CEPHALEXIN
     Indication: TOOTH INJURY
     Route: 048
     Dates: start: 20200727, end: 20200728
  2. NAPROXEN. [Concomitant]
     Active Substance: NAPROXEN
     Dates: start: 20200727

REACTIONS (4)
  - Gingival blister [None]
  - Swelling face [None]
  - Erythema [None]
  - Tenderness [None]

NARRATIVE: CASE EVENT DATE: 20200728
